FAERS Safety Report 20675406 (Version 1)
Quarter: 2022Q2

REPORT INFORMATION
  Report Type: Report from Study
  Country: AU (occurrence: AU)
  Receive Date: 20220405
  Receipt Date: 20220405
  Transmission Date: 20220720
  Serious: Yes (Life-Threatening, Hospitalization, Other)
  Sender: FDA-Public Use
  Company Number: AU-UCBSA-2022008157

PATIENT
  Age: 45 Year
  Sex: Female
  Weight: 108 kg

DRUGS (1)
  1. XYREM [Suspect]
     Active Substance: SODIUM OXYBATE
     Indication: Product used for unknown indication
     Dosage: UNK
     Route: 048

REACTIONS (6)
  - Suicidal ideation [Recovering/Resolving]
  - Suicide attempt [Recovered/Resolved]
  - Mood altered [Recovered/Resolved]
  - Obstructive sleep apnoea syndrome [Unknown]
  - Product use issue [Unknown]
  - Inability to afford medication [Unknown]

NARRATIVE: CASE EVENT DATE: 20211229
